FAERS Safety Report 22354308 (Version 1)
Quarter: 2023Q2

REPORT INFORMATION
  Report Type: Spontaneous
  Country: US (occurrence: None)
  Receive Date: 20230522
  Receipt Date: 20230522
  Transmission Date: 20230721
  Serious: Yes (Other)
  Sender: FDA-Public Use
  Company Number: None

PATIENT
  Age: 30 Year
  Sex: Female
  Weight: 65.25 kg

DRUGS (8)
  1. DEXTROAMPHET SACCHARAT, AMPHET ASPARTATE, DEXTROAMPHET SULFATE AND AMP [Suspect]
     Active Substance: AMPHETAMINE ASPARTATE\AMPHETAMINE ASPARTATE MONOHYDRATE\AMPHETAMINE SULFATE\DEXTROAMPHETAMINE SACCHA
     Indication: Attention deficit hyperactivity disorder
     Dosage: OTHER QUANTITY : 1 TABLET(S);?FREQUENCY : TWICE A DAY;?
     Route: 048
     Dates: start: 20230518, end: 20230522
  2. Guanfacine 1mg - once a day Apri birth control 28day [Concomitant]
  3. Centrum Women^s multivitamin [Concomitant]
  4. OmniBiotics [Concomitant]
  5. B complex [Concomitant]
  6. pro formula Align probiotic Natures Bounty 25mcg [Concomitant]
  7. VITAMIN D3 [Concomitant]
     Active Substance: CHOLECALCIFEROL
  8. APRI BIRTH CONTROL [Concomitant]

REACTIONS (14)
  - Product substitution issue [None]
  - Anxiety [None]
  - Panic attack [None]
  - Hypertension [None]
  - Paraesthesia [None]
  - Hypoaesthesia [None]
  - Heart rate increased [None]
  - Increased appetite [None]
  - Disturbance in attention [None]
  - Psychomotor hyperactivity [None]
  - Depressed mood [None]
  - Memory impairment [None]
  - Fear [None]
  - Product quality issue [None]

NARRATIVE: CASE EVENT DATE: 20230521
